FAERS Safety Report 9951991 (Version 1)
Quarter: 2014Q1

REPORT INFORMATION
  Report Type: Report from Study
  Country: US (occurrence: US)
  Receive Date: 20140304
  Receipt Date: 20140304
  Transmission Date: 20141002
  Serious: No
  Sender: FDA-Public Use
  Company Number: US-ABBVIE-13P-163-1071138-00

PATIENT
  Age: 54 Year
  Sex: Female

DRUGS (8)
  1. HUMIRA [Suspect]
     Indication: COLITIS ULCERATIVE
     Dates: start: 20120610
  2. METHOTREXATE [Concomitant]
     Indication: COLITIS ULCERATIVE
     Dosage: EVERY WEDNESDAY
  3. LISINOPRIL [Concomitant]
     Indication: HYPERTENSION
     Dosage: 40 MG DAILY
  4. AMLODIPINE [Concomitant]
     Indication: HYPERTENSION
     Dosage: 10 MG DAILY
  5. CRESTOR [Concomitant]
     Indication: HYPERTENSION
     Dosage: 10 MG DAILY
  6. FERROUS SULFATE [Concomitant]
     Indication: BLOOD IRON DECREASED
  7. METFORMIN [Concomitant]
     Indication: DIABETES MELLITUS
     Dosage: AT NIGHT
  8. GLIPIZIDE [Concomitant]
     Indication: DIABETES MELLITUS
     Dosage: 5 MG DAILY

REACTIONS (2)
  - Dysgeusia [Not Recovered/Not Resolved]
  - Nausea [Not Recovered/Not Resolved]
